FAERS Safety Report 9917125 (Version 2)
Quarter: 2014Q1

REPORT INFORMATION
  Report Type: Report from Study
  Country: GB (occurrence: GB)
  Receive Date: 20140221
  Receipt Date: 20140221
  Transmission Date: 20141002
  Serious: Yes (Hospitalization)
  Sender: FDA-Public Use
  Company Number: GB-ABBVIE-13P-167-1170057-00

PATIENT
  Age: 66 Year
  Sex: Male
  Weight: 83 kg

DRUGS (1)
  1. HUMIRA [Suspect]
     Indication: RHEUMATOID ARTHRITIS
     Route: 058
     Dates: start: 20061031

REACTIONS (2)
  - Pyloric stenosis [Unknown]
  - Abdominal pain [Unknown]
